FAERS Safety Report 5084073-1 (Version None)
Quarter: 2006Q3

REPORT INFORMATION
  Report Type: 
  Country: None (occurrence: None)
  Receive Date: 20060816
  Receipt Date: 20060803
  Transmission Date: 20061208
  Serious: Yes (Other)
  Sender: FDA-Public Use
  Company Number: SPV1-2006-00382

PATIENT
  Age: 13 Year
  Sex: Male

DRUGS (2)
  1. DAYTRANA (METHYLPHENIDATE)PATCH [Suspect]
     Indication: ATTENTION DEFICIT/HYPERACTIVITY DISORDER
     Dosage: 10 MG, TRANSDERMAL
     Route: 062
  2. CONCERTA (METHYLPHENDATE HYDROCHLORIDE) [Concomitant]

REACTIONS (2)
  - AGGRESSION [None]
  - EYE DISORDER [None]
